FAERS Safety Report 23938071 (Version 2)
Quarter: 2024Q3

REPORT INFORMATION
  Report Type: Spontaneous
  Country: NL (occurrence: NL)
  Receive Date: 20240604
  Receipt Date: 20240730
  Transmission Date: 20241017
  Serious: Yes (Other)
  Sender: BAXTER
  Company Number: None

PATIENT
  Age: 57 Year
  Sex: Male
  Weight: 80 kg

DRUGS (11)
  1. PROPOFOL [Suspect]
     Active Substance: PROPOFOL
     Indication: Endotracheal intubation
     Dosage: (PROPOFOL INJ.EMULSION 10 MG/ML) DOSAGE TEXT: 30ML/HOUR
     Route: 065
     Dates: start: 20240519, end: 20240520
  2. PROPOFOL [Suspect]
     Active Substance: PROPOFOL
     Indication: Sedation
  3. NADROPARIN CALCIUM [Concomitant]
     Active Substance: NADROPARIN CALCIUM
     Dosage: (NADROPARIN INJVLST 9500IE/ML /FRAXIPARIN INJVLST 2850IE/0,3ML (9500IE/ML) WWSP), DOSAGE TEXT: 2850I
     Route: 065
  4. DEXAMETHASONE [Concomitant]
     Active Substance: DEXAMETHASONE
     Dosage: (DEXAMETHASON INJVLST 20MG/ML (BASE)) DOSAGE TEXT: INJECTION FLUID, 20 MG/ML (MILLIGRAM PER MILLILIT
     Route: 065
  5. REMIFENTANIL [Concomitant]
     Active Substance: REMIFENTANIL
     Dosage: (REMIFENTANIL INJECTION/INFUSE), DOSAGE TEXT: 80UG/ML, 4ML/U
     Route: 065
  6. VALPROATE SODIUM [Concomitant]
     Active Substance: VALPROATE SODIUM
     Dosage: (VALPROIC ACID DRINK /DEPAKINE SUGAR-FREE SYRUP DRINK), DOSAGE TEXT: DRINK, 40 MG/ML (MILLIGRAM PER
     Route: 065
  7. CEFTRIAXONE [Concomitant]
     Active Substance: CEFTRIAXONE\CEFTRIAXONE SODIUM
     Dosage: (CEFTRIAXONE INFUSION POWDER), DOSAGE TEXT: SOLUTION FOR INFUSION, 2000 MG (MILLIGRAM)
     Route: 065
  8. VITAMIN K [Concomitant]
     Active Substance: PHYTONADIONE
     Dosage: (LIQUID FOOD INCLUDING VITAMIN K /NUTRITION PROTEIN ADVANCE), DOSAGE TEXT: PROTEIN ADVANCE
     Route: 065
  9. NOREPINEPHRINE [Concomitant]
     Active Substance: NOREPINEPHRINE\NOREPINEPHRINE BITARTRATE
     Dosage: (NORADRENALINE INFVLST 0.1 MG/ML) DOSAGE TEXT: INFUSION FLUID, 0.1 MG/ML (MILLIGRAM PER MILLILITER)
     Route: 065
  10. PANTOPRAZOLE [Concomitant]
     Active Substance: PANTOPRAZOLE
     Dosage: (PANTOPRAZOLE INJECTION POWDER 40MG)) DOSAGE TEXT: 4MG/ML, 40MG IV 2DD
     Route: 065
  11. AMOXICILLIN [Concomitant]
     Active Substance: AMOXICILLIN
     Dosage: DOSAGE TEXT: 40MG/ML, 12G/24U
     Route: 065

REACTIONS (9)
  - Blood triglycerides increased [Unknown]
  - Transaminases increased [Unknown]
  - Blood creatine phosphokinase increased [Unknown]
  - Atrial fibrillation [Unknown]
  - Renal failure [Unknown]
  - Metabolic acidosis [Recovered/Resolved]
  - Propofol infusion syndrome [Recovered/Resolved]
  - Cardiac failure [Unknown]
  - Hyperkalaemia [Unknown]
